FAERS Safety Report 6206358-5 (Version None)
Quarter: 2009Q2

REPORT INFORMATION
  Report Type: 
  Country: None (occurrence: None)
  Receive Date: 20090526
  Receipt Date: 20090514
  Transmission Date: 20091009
  Serious: Yes (Other)
  Sender: FDA-Public Use
  Company Number: 2009005561

PATIENT
  Age: 60 Year
  Sex: Male

DRUGS (2)
  1. TRISENOX [Suspect]
     Indication: MYELODYSPLASTIC SYNDROME
     Dosage: INTRAVENOUS DRIP
     Route: 041
  2. CYTARABINE [Concomitant]

REACTIONS (15)
  - CATHETER SITE PAIN [None]
  - COUGH [None]
  - DIARRHOEA [None]
  - HAEMATOCRIT DECREASED [None]
  - HEADACHE [None]
  - LEUKOPENIA [None]
  - MALIGNANT NEOPLASM PROGRESSION [None]
  - MYELODYSPLASTIC SYNDROME [None]
  - NEUTROPENIA [None]
  - NO THERAPEUTIC RESPONSE [None]
  - OROPHARYNGEAL PAIN [None]
  - REFRACTORY ANAEMIA [None]
  - THROMBOCYTOPENIA [None]
  - WEIGHT DECREASED [None]
  - WEIGHT INCREASED [None]
